FAERS Safety Report 19787605 (Version 3)
Quarter: 2021Q4

REPORT INFORMATION
  Report Type: Spontaneous
  Country: US (occurrence: US)
  Receive Date: 20210903
  Receipt Date: 20211008
  Transmission Date: 20220303
  Serious: Yes (Other)
  Sender: FDA-Public Use
  Company Number: US-GENERICUS, INC.-2021GNR00021

PATIENT
  Sex: Male
  Weight: 70.39 kg

DRUGS (1)
  1. TOBRAMYCIN [Suspect]
     Active Substance: TOBRAMYCIN
     Indication: Cystic fibrosis
     Dosage: 300/5 MG/ML, 2X/DAY FOR 28 DAYS ON THEN 28 DAYS OFF
     Dates: start: 202108

REACTIONS (1)
  - No adverse event [Unknown]
